FAERS Safety Report 9438369 (Version 1)
Quarter: 2013Q3

REPORT INFORMATION
  Report Type: Spontaneous
  Country: US (occurrence: US)
  Receive Date: 20130802
  Receipt Date: 20130802
  Transmission Date: 20140515
  Serious: Yes (Other)
  Sender: FDA-Public Use
  Company Number: US-BRISTOL-MYERS SQUIBB COMPANY-17038340

PATIENT
  Age: 68 Year
  Sex: Female
  Weight: 71.2 kg

DRUGS (2)
  1. COUMADIN [Suspect]
     Indication: CEREBROVASCULAR ACCIDENT
     Dosage: 6.5MG 5 DAYS PER WEEK AND 4MG 2 DAYS PER WEEK
     Dates: start: 1997
  2. WARFARIN SODIUM [Suspect]

REACTIONS (3)
  - International normalised ratio increased [Unknown]
  - Drug resistance [Unknown]
  - Blood pressure increased [Unknown]
